FAERS Safety Report 18941418 (Version 4)
Quarter: 2021Q3

REPORT INFORMATION
  Report Type: Report from Study
  Country: US (occurrence: US)
  Receive Date: 20210225
  Receipt Date: 20210910
  Transmission Date: 20211014
  Serious: No
  Sender: FDA-Public Use
  Company Number: NVSC2021US036783

PATIENT
  Sex: Female

DRUGS (1)
  1. KESIMPTA [Suspect]
     Active Substance: OFATUMUMAB
     Indication: PRODUCT USED FOR UNKNOWN INDICATION
     Dosage: 20 MG (SOLUTION)
     Route: 058
     Dates: start: 20210203

REACTIONS (4)
  - Musculoskeletal discomfort [Unknown]
  - General physical health deterioration [Unknown]
  - Gait disturbance [Unknown]
  - Drug ineffective [Unknown]
